FAERS Safety Report 7465118-8 (Version None)
Quarter: 2011Q1

REPORT INFORMATION
  Report Type: 
  Country: None (occurrence: None)
  Receive Date: 20110302
  Receipt Date: 20100924
  Transmission Date: 20110831
  Serious: Yes (Hospitalization)
  Sender: FDA-Public Use
  Company Number: 163-21880-10072787

PATIENT
  Age: 86 Year
  Sex: Male

DRUGS (8)
  1. DECADRON [Concomitant]
  2. ASPIRIN [Concomitant]
  3. REVLIMID [Suspect]
     Indication: MULTIPLE MYELOMA
     Dosage: SEE IMAGE
     Route: 048
     Dates: start: 20100301
  4. REVLIMID [Suspect]
     Indication: MULTIPLE MYELOMA
     Dosage: SEE IMAGE
     Route: 048
     Dates: start: 20100609
  5. REVLIMID [Suspect]
     Indication: MULTIPLE MYELOMA
     Dosage: SEE IMAGE
     Route: 048
     Dates: start: 20100701
  6. BENICAR HCT (BENICAR HCT) [Concomitant]
  7. NORVASC [Concomitant]
  8. PEPCID [Concomitant]

REACTIONS (1)
  - AORTIC STENOSIS [None]
